FAERS Safety Report 7751435-0 (Version None)
Quarter: 2011Q3

REPORT INFORMATION
  Report Type: 
  Country: None (occurrence: None)
  Receive Date: 20110914
  Receipt Date: 20110831
  Transmission Date: 20111222
  Serious: Yes (Other)
  Sender: FDA-Public Use
  Company Number: PHHY2011BR77861

PATIENT
  Sex: Female

DRUGS (2)
  1. DIOVAN HCT [Suspect]
     Dosage: 1 DF (160/12.5 MG), UNK
  2. DIOVAN HCT [Suspect]
     Dosage: 0.5 DF (160/12.5 MG), UNK

REACTIONS (3)
  - POLYCYSTIC OVARIES [None]
  - RENAL DISORDER [None]
  - BLOOD PRESSURE DECREASED [None]
